FAERS Safety Report 8565749-8 (Version None)
Quarter: 2012Q3

REPORT INFORMATION
  Report Type: 
  Country: None (occurrence: None)
  Receive Date: 20120803
  Receipt Date: 20110923
  Transmission Date: 20120928
  Serious: No
  Sender: FDA-Public Use
  Company Number: US-ABBOTT-11P-163-0858087-00

PATIENT
  Sex: Male
  Weight: 103.97 kg

DRUGS (6)
  1. NIASPAN [Suspect]
     Indication: BLOOD CHOLESTEROL INCREASED
     Dates: start: 20110921
  2. FENOFIBRATE [Concomitant]
     Indication: BLOOD CHOLESTEROL INCREASED
  3. FLUOXETINE HCL [Concomitant]
     Indication: DEPRESSION
  4. LOSARTAN POTASSIUM [Concomitant]
     Indication: HYPERTENSION
  5. ASPIRIN [Concomitant]
     Indication: CARDIOVASCULAR EVENT PROPHYLAXIS
  6. METFORMIN HYDROCHLORIDE [Concomitant]
     Indication: DIABETES MELLITUS

REACTIONS (3)
  - FEELING HOT [None]
  - ERYTHEMA [None]
  - PARAESTHESIA [None]
